FAERS Safety Report 16913383 (Version 1)
Quarter: 2019Q4

REPORT INFORMATION
  Report Type: Spontaneous
  Country: US (occurrence: US)
  Receive Date: 20191014
  Receipt Date: 20191014
  Transmission Date: 20200122
  Serious: No
  Sender: FDA-Public Use
  Company Number: US-GLENMARK PHARMACEUTICALS-2019GMK042385

PATIENT
  Age: 21 Year
  Sex: Female

DRUGS (1)
  1. NORGESTIMATE AND ETHINYL ESTRADIOL [Suspect]
     Active Substance: ETHINYL ESTRADIOL\NORGESTIMATE
     Indication: CONTRACEPTION
     Dosage: 1 DF, OD
     Route: 065
     Dates: start: 20190531, end: 2019

REACTIONS (10)
  - Product substitution issue [Unknown]
  - Product formulation issue [Unknown]
  - Crying [Recovered/Resolved]
  - Anxiety [Recovered/Resolved]
  - Manufacturing issue [Unknown]
  - Feelings of worthlessness [Recovered/Resolved]
  - Disturbance in attention [Recovered/Resolved]
  - Nausea [Recovered/Resolved]
  - Depression [Recovered/Resolved]
  - Product quality control issue [Unknown]

NARRATIVE: CASE EVENT DATE: 2019
